FAERS Safety Report 4276427-8 (Version None)
Quarter: 2004Q1

REPORT INFORMATION
  Report Type: 
  Country: None (occurrence: None)
  Receive Date: 20040116
  Receipt Date: 20031224
  Transmission Date: 20041129
  Serious: Yes (Hospitalization)
  Sender: FDA-Public Use
  Company Number: 7086

PATIENT
  Age: 61 Year
  Sex: Male

DRUGS (6)
  1. ENBREL [Suspect]
     Indication: RHEUMATOID ARTHRITIS
     Dosage: 25 MG 2/WK SC
     Route: 058
     Dates: start: 20021118, end: 20030606
  2. METHOTREXATE [Suspect]
     Indication: RHEUMATOID ARTHRITIS
     Dosage: 10 MG WEEKLY PO
     Route: 048
     Dates: start: 19990402, end: 20030627
  3. CISPLATIN [Suspect]
     Indication: SQUAMOUS CELL CARCINOMA
  4. FLUOROURACIL [Suspect]
     Indication: SQUAMOUS CELL CARCINOMA
  5. VIOXX [Concomitant]
  6. DARVOCET-N 100 [Concomitant]

REACTIONS (7)
  - CHILLS [None]
  - MUCOSAL INFLAMMATION [None]
  - NAUSEA [None]
  - NEUTROPENIA [None]
  - PYREXIA [None]
  - SQUAMOUS CELL CARCINOMA [None]
  - VOMITING [None]
